FAERS Safety Report 8248136-1 (Version None)
Quarter: 2012Q1

REPORT INFORMATION
  Report Type: 
  Country: None (occurrence: None)
  Receive Date: 20120330
  Receipt Date: 20120323
  Transmission Date: 20120608
  Serious: Yes (Hospitalization)
  Sender: FDA-Public Use
  Company Number: US-BAYER-2011-069950

PATIENT
  Age: 23 Year
  Sex: Female
  Weight: 68.027 kg

DRUGS (4)
  1. MINOCYCLINE HCL [Concomitant]
     Indication: ACNE
     Dosage: UNK
     Dates: start: 20070101
  2. YAZ [Suspect]
     Indication: PREMENSTRUAL SYNDROME
  3. XOPENEX [Concomitant]
     Indication: ASTHMA
     Dosage: UNK
     Dates: start: 20030101
  4. YAZ [Suspect]
     Indication: ACNE
     Dosage: UNK
     Dates: start: 20090201, end: 20090901

REACTIONS (12)
  - ANHEDONIA [None]
  - MENTAL DISORDER [None]
  - GASTRITIS [None]
  - EMOTIONAL DISTRESS [None]
  - ANXIETY [None]
  - PAIN [None]
  - OESOPHAGITIS [None]
  - HIATUS HERNIA [None]
  - ABDOMINAL PAIN UPPER [None]
  - INJURY [None]
  - POST PROCEDURAL COMPLICATION [None]
  - CHOLECYSTECTOMY [None]
